FAERS Safety Report 8342907-9 (Version None)
Quarter: 2012Q2

REPORT INFORMATION
  Report Type: 
  Country: None (occurrence: None)
  Receive Date: 20120508
  Receipt Date: 20120504
  Transmission Date: 20120825
  Serious: No
  Sender: FDA-Public Use
  Company Number: US-PFIZER INC-2012109936

PATIENT
  Sex: Female

DRUGS (1)
  1. CAMPTOSAR [Suspect]
     Indication: PELVIC NEOPLASM
     Dosage: 100 MG, UNK
     Dates: start: 20120321

REACTIONS (2)
  - PELVIC NEOPLASM [None]
  - DISEASE PROGRESSION [None]
